FAERS Safety Report 6619276-5 (Version None)
Quarter: 2010Q1

REPORT INFORMATION
  Report Type: 
  Country: None (occurrence: None)
  Receive Date: 20100303
  Receipt Date: 20100216
  Transmission Date: 20100710
  Serious: Yes (Hospitalization)
  Sender: FDA-Public Use
  Company Number: 007776

PATIENT
  Sex: Female

DRUGS (17)
  1. CERTOLIZUMAB PEGOL (CERTOLIZUMAB PEGOL) [Suspect]
     Indication: RHEUMATOID ARTHRITIS
     Dosage: (SUBCUTANEOUS)
     Route: 058
     Dates: start: 20091112, end: 20100217
  2. METHOTREXATE [Suspect]
     Dosage: (8 MG ORAL)
     Dates: start: 20090327, end: 20100217
  3. PREDONINE /00016201/ (PREDONINE) [Suspect]
     Dosage: (5 MG ORAL)
     Route: 048
     Dates: start: 20041216
  4. FOLIC ACID [Concomitant]
  5. LOXOPROFEN SODIUM [Concomitant]
  6. ENPROSTIL [Concomitant]
  7. TIZANIDINE HYDROCHLORIDE [Concomitant]
  8. OMEPRAZOLE [Concomitant]
  9. LEVOTHYROXINE SODIUM [Concomitant]
  10. THIAMAZOLE [Concomitant]
  11. MITIGLINIDE [Concomitant]
  12. EPALRESTAT [Concomitant]
  13. RISEDRONATE SODIUM [Concomitant]
  14. SENNA LEAF [Concomitant]
  15. NITROGLYCERIN [Concomitant]
  16. LACTOMIN [Concomitant]
  17. VALACYCLOVIR [Concomitant]

REACTIONS (3)
  - GENITAL HERPES [None]
  - HERPES ZOSTER [None]
  - VULVOVAGINAL PAIN [None]
